FAERS Safety Report 7350385-1 (Version None)
Quarter: 2011Q1

REPORT INFORMATION
  Report Type: 
  Country: None (occurrence: None)
  Receive Date: 20110222
  Receipt Date: 20101208
  Transmission Date: 20110831
  Serious: No
  Sender: FDA-Public Use
  Company Number: 023487

PATIENT

DRUGS (1)
  1. LACOSAMIDE [Suspect]

REACTIONS (2)
  - ABNORMAL BEHAVIOUR [None]
  - DISINHIBITION [None]
